FAERS Safety Report 25232681 (Version 3)
Quarter: 2025Q2

REPORT INFORMATION
  Report Type: Spontaneous
  Country: US (occurrence: US)
  Receive Date: 20250424
  Receipt Date: 20250623
  Transmission Date: 20250716
  Serious: No
  Sender: SANOFI AVENTIS
  Company Number: US-SA-2025SA117097

PATIENT
  Age: 62 Year
  Sex: Female

DRUGS (1)
  1. DUPIXENT [Suspect]
     Active Substance: DUPILUMAB
     Indication: Sinus polyp
     Dosage: 300 MG, QOW
     Route: 058
     Dates: start: 202501

REACTIONS (6)
  - Eyelids pruritus [Recovered/Resolved]
  - Hypersensitivity [Unknown]
  - Throat irritation [Unknown]
  - Eye pruritus [Unknown]
  - Ear discomfort [Unknown]
  - Facial discomfort [Unknown]

NARRATIVE: CASE EVENT DATE: 20250101
